FAERS Safety Report 25085422 (Version 1)
Quarter: 2025Q1

REPORT INFORMATION
  Report Type: Spontaneous
  Country: CN (occurrence: CN)
  Receive Date: 20250317
  Receipt Date: 20250317
  Transmission Date: 20250409
  Serious: Yes (Other)
  Sender: NOVARTIS
  Company Number: CN-002147023-NVSC2025CN043523

PATIENT
  Age: 82 Year
  Sex: Male

DRUGS (1)
  1. ENTRESTO [Suspect]
     Active Substance: SACUBITRIL\VALSARTAN
     Indication: Cardiac failure chronic
     Route: 065

REACTIONS (11)
  - Cardiac failure [Recovered/Resolved]
  - Dyspnoea [Recovered/Resolved]
  - Asthenia [Recovered/Resolved]
  - Listless [Recovered/Resolved]
  - Temperature intolerance [Recovered/Resolved]
  - Peripheral coldness [Recovered/Resolved]
  - Oedema peripheral [Recovered/Resolved]
  - Pulse abnormal [Recovered/Resolved]
  - Chest discomfort [Recovered/Resolved]
  - Tongue discolouration [Recovered/Resolved]
  - Salivary gland mass [Recovered/Resolved]
